FAERS Safety Report 9320074 (Version 1)
Quarter: 2013Q2

REPORT INFORMATION
  Report Type: Spontaneous
  Country: JP (occurrence: JP)
  Receive Date: 20130530
  Receipt Date: 20130530
  Transmission Date: 20140414
  Serious: Yes (Hospitalization, Other)
  Sender: FDA-Public Use
  Company Number: JP-ALEXION PHARMACEUTICALS INC.-A201301185

PATIENT
  Age: 28 Year
  Sex: Male

DRUGS (7)
  1. SOLIRIS 300MG [Suspect]
     Indication: PAROXYSMAL NOCTURNAL HAEMOGLOBINURIA
     Dosage: 900 MG, Q2W
     Route: 042
  2. PREDNISOLONE [Concomitant]
     Indication: PRODUCT USED FOR UNKNOWN INDICATION
     Dosage: UNK
     Dates: end: 20101019
  3. PREDNISOLONE [Concomitant]
     Dosage: 10 MG, QD
     Dates: start: 20121212, end: 20130205
  4. PREDNISOLONE [Concomitant]
     Dosage: 15 MG, QD
     Dates: start: 20130206
  5. MIZORIBINE [Concomitant]
     Indication: PRODUCT USED FOR UNKNOWN INDICATION
     Dosage: 200 MG, QD
     Dates: end: 20130206
  6. FERROMIA [Concomitant]
     Indication: PRODUCT USED FOR UNKNOWN INDICATION
     Dosage: 50MG QD
     Dates: start: 20121128
  7. BAYASPIRIN [Concomitant]
     Indication: PRODUCT USED FOR UNKNOWN INDICATION
     Dosage: 100 MG, QD
     Dates: start: 20121114

REACTIONS (5)
  - Drug ineffective [Unknown]
  - Transfusion [Unknown]
  - Upper respiratory tract infection [Recovered/Resolved]
  - Chromaturia [Unknown]
  - Haemolysis [Unknown]
